FAERS Safety Report 14140095 (Version 3)
Quarter: 2017Q4

REPORT INFORMATION
  Report Type: Spontaneous
  Country: DE (occurrence: DE)
  Receive Date: 20171030
  Receipt Date: 20171113
  Transmission Date: 20180321
  Serious: Yes (Other)
  Sender: FDA-Public Use
  Company Number: DE-AMGEN-DEUSP2017160387

PATIENT
  Age: 60 Year
  Sex: Female
  Weight: 55 kg

DRUGS (4)
  1. VITAMIN D [Concomitant]
     Active Substance: CHOLECALCIFEROL
     Dosage: 20000 IU, QMO
     Route: 048
  2. PROLIA [Suspect]
     Active Substance: DENOSUMAB
     Indication: LUMBAR VERTEBRAL FRACTURE
     Dosage: 60 MG, UNK
     Route: 058
     Dates: start: 201303, end: 201303
  3. PROLIA [Suspect]
     Active Substance: DENOSUMAB
     Indication: SPINAL FRACTURE
     Dosage: 60 MG, UNK
     Route: 058
     Dates: start: 201302
  4. PROLIA [Suspect]
     Active Substance: DENOSUMAB
     Indication: BONE DISORDER

REACTIONS (1)
  - Chronic kidney disease-mineral and bone disorder [Recovering/Resolving]

NARRATIVE: CASE EVENT DATE: 2013
